FAERS Safety Report 5760180 (Version 6)
Quarter: 2020Q3

REPORT INFORMATION
  Report Type: Report from Study
  Country: US (occurrence: US)
  Receive Date: 20050317
  Receipt Date: 20200410
  Transmission Date: 20201105
  Serious: Yes (Death)
  Sender: FDA-Public Use
  Company Number: US-JNJFOC-20050303077

PATIENT
  Age: 4 Year
  Sex: Female
  Weight: 9.1 kg

DRUGS (21)
  1. KENALOG [Concomitant]
     Active Substance: TRIAMCINOLONE ACETONIDE
     Route: 061
  2. MILK OF MAGNESIA [Concomitant]
     Active Substance: MAGNESIUM HYDROXIDE
     Dosage: DOSE ADJUSTMENT; GASTROENTERAL USE
     Route: 065
     Dates: start: 20040730
  3. TOPAMAX [Concomitant]
     Active Substance: TOPIRAMATE
     Dosage: DOSE ADJUSTMENT; GASTROENTERAL USE
     Route: 065
     Dates: start: 20041215
  4. NYSTATIN. [Concomitant]
     Active Substance: NYSTATIN
     Indication: CELLULITIS
     Dates: start: 20050218
  5. MILK OF MAGNESIA [Concomitant]
     Active Substance: MAGNESIUM HYDROXIDE
     Indication: GASTROINTESTINAL DISORDER
     Dosage: GASTROENTERAL USE
     Route: 065
     Dates: start: 20030917, end: 20040510
  6. BACTROBAN [Concomitant]
     Active Substance: MUPIROCIN\MUPIROCIN CALCIUM
     Indication: CELLULITIS
     Route: 061
     Dates: start: 20050120
  7. DIASTAT [Concomitant]
     Active Substance: DIAZEPAM
     Indication: SEIZURE
     Dates: start: 20040224
  8. TOPAMAX [Concomitant]
     Active Substance: TOPIRAMATE
     Dosage: DOSE ADJUSTMENT; GASTROENTERAL USE
     Route: 065
     Dates: start: 20041101, end: 20041215
  9. TOPAMAX [Concomitant]
     Active Substance: TOPIRAMATE
     Dosage: DOSE ADJUSTMENT; GASTROENTERAL USE
     Route: 065
     Dates: start: 20041101, end: 20041215
  10. ATIVAN [Concomitant]
     Active Substance: LORAZEPAM
     Indication: SEIZURE
     Dosage: GASTROENTERAL USE
     Route: 065
     Dates: start: 20040224
  11. LAMICTAL [Concomitant]
     Active Substance: LAMOTRIGINE
     Indication: SEIZURE
     Dosage: TAKE 25 MG IN THE AM + 37.5 MG AT BEDTIME.; GASTROENTERAL USE
     Route: 065
     Dates: start: 20041101
  12. CISAPRIDE [Suspect]
     Active Substance: CISAPRIDE
     Indication: GASTROOESOPHAGEAL REFLUX DISEASE
     Dosage: ROUTE OF ADMIN: GASTROENTERAL USE
     Route: 065
     Dates: start: 20021215, end: 20050110
  13. MILK OF MAGNESIA [Concomitant]
     Active Substance: MAGNESIUM HYDROXIDE
     Dosage: DOSE ADJUSTMENT; GASTROENTERAL USE
     Route: 065
     Dates: start: 20040510, end: 20040730
  14. TOPAMAX [Concomitant]
     Active Substance: TOPIRAMATE
     Dosage: DOSE ADJUSTMENT; GASTROENTERAL USE
     Route: 065
     Dates: start: 20040413, end: 20041101
  15. CISAPRIDE [Suspect]
     Active Substance: CISAPRIDE
     Dosage: ROUTE OF ADMIN: GASTROENTERAL USE
     Route: 065
     Dates: start: 20050307, end: 20050308
  16. CALCIUM QUICK [Concomitant]
     Indication: NUTRITIONAL SUPPLEMENTATION
     Dates: start: 20030701
  17. FLOVENT [Concomitant]
     Active Substance: FLUTICASONE PROPIONATE
     Indication: INFLAMMATION
     Dates: start: 20031120
  18. CISAPRIDE [Suspect]
     Active Substance: CISAPRIDE
     Dosage: ROUTE OF ADMIN: GASTROENTERAL USE
     Route: 065
     Dates: start: 20050110
  19. POLY VI SOL [Concomitant]
     Indication: NUTRITIONAL SUPPLEMENTATION
     Dates: start: 20030701
  20. PREVACID [Concomitant]
     Active Substance: LANSOPRAZOLE
     Indication: GASTROOESOPHAGEAL REFLUX DISEASE
     Dosage: GASTROENTERAL USE
     Route: 065
     Dates: start: 20040730
  21. TOPAMAX [Concomitant]
     Active Substance: TOPIRAMATE
     Indication: SEIZURE
     Dosage: GASTROENTERAL USE
     Route: 065
     Dates: start: 20040115, end: 20040413

REACTIONS (1)
  - Congenital megacolon [Fatal]

NARRATIVE: CASE EVENT DATE: 20050308
